FAERS Safety Report 6152005-0 (Version None)
Quarter: 2009Q2

REPORT INFORMATION
  Report Type: 
  Country: None (occurrence: None)
  Receive Date: 20090409
  Receipt Date: 20090409
  Transmission Date: 20091009
  Serious: Yes (Life-Threatening, Hospitalization)
  Sender: FDA-Public Use
  Company Number: None

PATIENT
  Age: 54 Year
  Sex: Male
  Weight: 131.5431 kg

DRUGS (8)
  1. AMIODARONE HCL [Suspect]
     Indication: ARRHYTHMIA
     Dosage: 400  MG ONCE DAILY PO
     Route: 047
     Dates: start: 20080802, end: 20080825
  2. COUMADIN [Concomitant]
  3. GENERIC LOPID [Concomitant]
  4. DILTIAZEM [Concomitant]
  5. GLIPIZIDE [Concomitant]
  6. LISINOPRIL [Concomitant]
  7. DIGOXIN [Concomitant]
  8. METFORMIN HCL [Concomitant]

REACTIONS (3)
  - CONSTIPATION [None]
  - LUNG DISORDER [None]
  - VISION BLURRED [None]
